FAERS Safety Report 6507721-5 (Version None)
Quarter: 2009Q4

REPORT INFORMATION
  Report Type: 
  Country: None (occurrence: None)
  Receive Date: 20091221
  Receipt Date: 20091210
  Transmission Date: 20100525
  Serious: No
  Sender: FDA-Public Use
  Company Number: US-B.I. PHARMACEUTICALS,INC./RIDGEFIELD-2009-BP-13389BP

PATIENT
  Sex: Female

DRUGS (12)
  1. SPIRIVA [Suspect]
     Indication: CHRONIC OBSTRUCTIVE PULMONARY DISEASE
     Dosage: 18 MCG
     Route: 055
     Dates: start: 20080101
  2. ATENOLOL [Concomitant]
  3. ASPIRIN [Concomitant]
  4. LAMOTRIGINE [Concomitant]
  5. AMLODIPINE BESYLATE [Concomitant]
  6. SIMVASTATIN [Concomitant]
  7. CLONIDINE HCL [Concomitant]
  8. LISINOPRIL [Concomitant]
  9. COLACE [Concomitant]
  10. OMEPRAZOLE [Concomitant]
  11. CENTRUM SILVER [Concomitant]
  12. ADVAIR DISKS [Concomitant]

REACTIONS (2)
  - DIARRHOEA [None]
  - MEDICATION ERROR [None]
